FAERS Safety Report 6910727-5 (Version None)
Quarter: 2010Q3

REPORT INFORMATION
  Report Type: 
  Country: None (occurrence: None)
  Receive Date: 20100806
  Receipt Date: 20100802
  Transmission Date: 20110219
  Serious: Yes (Other)
  Sender: FDA-Public Use
  Company Number: BR-ROCHE-718586

PATIENT
  Sex: Female
  Weight: 65 kg

DRUGS (8)
  1. TOCILIZUMAB [Suspect]
     Indication: RHEUMATOID ARTHRITIS
     Route: 065
     Dates: start: 20100716
  2. RITUXIMAB [Suspect]
     Indication: RHEUMATOID ARTHRITIS
     Dosage: DOSE: 1000 MG/ML, FORM:INFUSION
     Route: 042
     Dates: start: 20100501, end: 20100501
  3. DIOVAN [Concomitant]
  4. PANTOPRAZOLE [Concomitant]
  5. METICORTEN [Concomitant]
  6. METHOTREXATE [Concomitant]
  7. ENDOFOLIN [Concomitant]
  8. CELEBRA [Concomitant]
     Indication: PAIN

REACTIONS (3)
  - DRUG INEFFECTIVE [None]
  - GAIT DISTURBANCE [None]
  - RHEUMATOID FACTOR INCREASED [None]
